FAERS Safety Report 24885401 (Version 1)
Quarter: 2025Q1

REPORT INFORMATION
  Report Type: Spontaneous
  Country: US (occurrence: US)
  Receive Date: 20250124
  Receipt Date: 20250124
  Transmission Date: 20250409
  Serious: No
  Sender: PARI RESPIRATORY EQUIPMENT
  Company Number: US-PARI RESPIRATORY EQUIPMENT, INC.-2024PAR00046

PATIENT
  Age: 3 Year
  Sex: Female
  Weight: 14.014 kg

DRUGS (5)
  1. KITABIS PAK [Suspect]
     Active Substance: TOBRAMYCIN
     Indication: Bacterial disease carrier
     Dosage: 1.25 ML (75 MG) EVERY 12 HOURS FOR 28 DAYS ON 28 DAYS OFF
  2. KITABIS PAK [Suspect]
     Active Substance: TOBRAMYCIN
     Indication: Cystic fibrosis
  3. PREVACID [Concomitant]
     Active Substance: LANSOPRAZOLE
  4. ALBUTEROL SULFATE [Concomitant]
     Active Substance: ALBUTEROL SULFATE
  5. CUVPOSA [GLYCOPYRRONIUM] [Concomitant]

REACTIONS (3)
  - Metapneumovirus infection [Recovered/Resolved]
  - Ear infection [Unknown]
  - Off label use [Unknown]

NARRATIVE: CASE EVENT DATE: 20240511
